FAERS Safety Report 6133683-9 (Version None)
Quarter: 2009Q1

REPORT INFORMATION
  Report Type: 
  Country: None (occurrence: None)
  Receive Date: 20090326
  Receipt Date: 20090319
  Transmission Date: 20090719
  Serious: Yes (Other)
  Sender: FDA-Public Use
  Company Number: B0562403A

PATIENT
  Age: 77 Year
  Sex: Female

DRUGS (8)
  1. VALTREX [Suspect]
     Indication: HERPES ZOSTER
     Dosage: 1000MG THREE TIMES PER DAY
     Route: 048
     Dates: start: 20090221, end: 20090225
  2. BENET [Concomitant]
     Dosage: 7.5MG PER DAY
     Route: 048
  3. AMARYL [Concomitant]
     Dosage: 1MG PER DAY
     Route: 048
  4. CIBACEN [Concomitant]
     Dosage: 50MG PER DAY
     Route: 048
  5. UNKNOWN DRUG [Concomitant]
     Route: 048
  6. MEVARICH [Concomitant]
     Dosage: 10MG PER DAY
     Route: 048
  7. URSO 250 [Concomitant]
     Dosage: 300MG PER DAY
     Route: 048
  8. POLYFUL [Concomitant]
     Dosage: 1.5G PER DAY
     Route: 048

REACTIONS (1)
  - HYPOGLYCAEMIA [None]
